FAERS Safety Report 5011851-7 (Version None)
Quarter: 2006Q2

REPORT INFORMATION
  Report Type: 
  Country: None (occurrence: None)
  Receive Date: 20060524
  Receipt Date: 20060524
  Transmission Date: 20061013
  Serious: Yes (Hospitalization)
  Sender: FDA-Public Use
  Company Number: None

PATIENT
  Age: 58 Year
  Sex: Male
  Weight: 103.6 kg

DRUGS (2)
  1. LISINOPRIL [Suspect]
     Indication: HYPERTENSION
     Dosage: 1/2 TAB PO DAILY
     Route: 048
     Dates: start: 20050502, end: 20060119
  2. TRIAMTERENE W/ HYDROCHLOROTHIAZIDE [Suspect]
     Indication: HYPERTENSION
     Dosage: 1/2 TAB PO DAILY
     Route: 048
     Dates: start: 20050418, end: 20060119

REACTIONS (2)
  - CHOLELITHIASIS [None]
  - PANCREATITIS ACUTE [None]
